FAERS Safety Report 19223375 (Version 1)
Quarter: 2021Q2

REPORT INFORMATION
  Report Type: Spontaneous
  Country: US (occurrence: US)
  Receive Date: 20210506
  Receipt Date: 20210506
  Transmission Date: 20210717
  Serious: Yes (Life-Threatening, Hospitalization, Disabling)
  Sender: FDA-Public Use
  Company Number: None

PATIENT
  Age: 55 Year
  Sex: Female
  Weight: 97.65 kg

DRUGS (18)
  1. OLMESARTAN [Concomitant]
     Active Substance: OLMESARTAN
  2. TIZANIDINE. [Concomitant]
     Active Substance: TIZANIDINE
  3. DOXASOZIN [Concomitant]
     Active Substance: DOXAZOSIN MESYLATE
  4. VITAMIN E [Concomitant]
     Active Substance: .ALPHA.-TOCOPHEROL
  5. ALPRAZOLAM. [Suspect]
     Active Substance: ALPRAZOLAM
     Indication: WITHDRAWAL SYNDROME
     Dosage: ?          QUANTITY:1 TABLET(S);?
     Route: 048
     Dates: start: 20191001, end: 20210506
  6. LEVOTHYROXINE. [Concomitant]
     Active Substance: LEVOTHYROXINE
  7. METFORMIN [Concomitant]
     Active Substance: METFORMIN HYDROCHLORIDE
  8. PROBIOTIC [Concomitant]
     Active Substance: PROBIOTICS NOS
  9. PROZAC [Suspect]
     Active Substance: FLUOXETINE HYDROCHLORIDE
  10. XANAX [Concomitant]
     Active Substance: ALPRAZOLAM
  11. VENTOLIN [Concomitant]
     Active Substance: ALBUTEROL SULFATE
  12. CLONIDINE. [Concomitant]
     Active Substance: CLONIDINE
  13. DIAZEPAM. [Suspect]
     Active Substance: DIAZEPAM
     Indication: INSOMNIA
     Dosage: ?          QUANTITY:1 TABLET(S);?
     Route: 048
     Dates: start: 19861001, end: 19961001
  14. POTASSIUM CHLORIDE. [Concomitant]
     Active Substance: POTASSIUM CHLORIDE
  15. POTASSIUM CHLORIDE. [Concomitant]
     Active Substance: POTASSIUM CHLORIDE
  16. MULTIVITAMIN [Concomitant]
     Active Substance: VITAMINS
  17. AMLODIPINE [Concomitant]
     Active Substance: AMLODIPINE BESYLATE
  18. FUROSEMIDE. [Concomitant]
     Active Substance: FUROSEMIDE

REACTIONS (24)
  - Anxiety [None]
  - Agoraphobia [None]
  - Withdrawal syndrome [None]
  - Muscular weakness [None]
  - Muscle spasms [None]
  - Abnormal dreams [None]
  - Sleep disorder [None]
  - Therapy change [None]
  - Gait disturbance [None]
  - Mental status changes [None]
  - Suicide attempt [None]
  - Anger [None]
  - Emotional distress [None]
  - Psychotic disorder [None]
  - Tinnitus [None]
  - Therapy cessation [None]
  - Fall [None]
  - Balance disorder [None]
  - Dizziness [None]
  - Educational problem [None]
  - General physical health deterioration [None]
  - Akathisia [None]
  - Headache [None]
  - Injury [None]

NARRATIVE: CASE EVENT DATE: 20191001
